FAERS Safety Report 4678485-5 (Version None)
Quarter: 2005Q2

REPORT INFORMATION
  Report Type: 
  Country: None (occurrence: None)
  Receive Date: 20050601
  Receipt Date: 20020304
  Transmission Date: 20051028
  Serious: Yes (Death)
  Sender: FDA-Public Use
  Company Number: US-ROCHE-308562

PATIENT
  Age: 30 Year
  Sex: Male
  Weight: 72.6 kg

DRUGS (12)
  1. ACCUTANE [Suspect]
     Route: 048
     Dates: start: 20010621, end: 20010706
  2. ACCUTANE [Suspect]
     Route: 048
     Dates: start: 20010705, end: 20010719
  3. ACCUTANE [Suspect]
     Route: 048
     Dates: start: 20010720, end: 20010802
  4. ACCUTANE [Suspect]
     Route: 048
     Dates: start: 20010803, end: 20020219
  5. ACCUTANE [Suspect]
     Route: 048
     Dates: start: 20000731
  6. TETRACYCLINE [Concomitant]
     Route: 048
     Dates: start: 20010517
  7. ACYCLOVIR [Concomitant]
     Route: 048
     Dates: start: 20010430
  8. RETIN-A MICRO [Concomitant]
     Dates: start: 20010625
  9. FLUOCINONIDE OINTMENT [Concomitant]
     Dates: start: 20010820
  10. DESOWEN [Concomitant]
  11. BENZAMYCIN [Concomitant]
     Route: 061
     Dates: start: 20000731
  12. VALTREX [Concomitant]
     Route: 048

REACTIONS (8)
  - BLOOD ETHANOL INCREASED [None]
  - COMPLETED SUICIDE [None]
  - DEPRESSION [None]
  - DEREALISATION [None]
  - DROWNING [None]
  - DRUG INEFFECTIVE [None]
  - PSYCHOTIC DISORDER [None]
  - SUICIDAL IDEATION [None]
